FAERS Safety Report 7265469-6 (Version None)
Quarter: 2011Q1

REPORT INFORMATION
  Report Type: 
  Country: None (occurrence: None)
  Receive Date: 20110131
  Receipt Date: 20110121
  Transmission Date: 20110831
  Serious: Yes (Other)
  Sender: FDA-Public Use
  Company Number: PHHY2011US05293

PATIENT
  Sex: Male

DRUGS (6)
  1. CLONAZEPAM [Concomitant]
     Dosage: UNK
  2. GILENYA [Suspect]
     Indication: MULTIPLE SCLEROSIS
     Dosage: 0.5 MG, DAILY
     Route: 048
     Dates: start: 20101202
  3. CYMBALTA [Concomitant]
     Dosage: UNK
  4. NUVIGIL [Concomitant]
     Dosage: UNK
  5. GABAPENTIN [Concomitant]
     Dosage: UNK
  6. WARFARIN [Concomitant]
     Dosage: UNK

REACTIONS (6)
  - WALKING AID USER [None]
  - LIMB DISCOMFORT [None]
  - FALL [None]
  - VISUAL IMPAIRMENT [None]
  - VISION BLURRED [None]
  - TREMOR [None]
